FAERS Safety Report 18192829 (Version 1)
Quarter: 2020Q3

REPORT INFORMATION
  Report Type: Spontaneous
  Country: US (occurrence: US)
  Receive Date: 20200825
  Receipt Date: 20200825
  Transmission Date: 20201103
  Serious: Yes (Death)
  Sender: FDA-Public Use
  Company Number: None

PATIENT
  Age: 79 Year
  Sex: Female
  Weight: 36 kg

DRUGS (2)
  1. OXYCODONE IMMEDIATE RELEASE [Concomitant]
     Active Substance: OXYCODONE
     Dates: start: 20200824, end: 20200824
  2. REMDESIVIR. [Suspect]
     Active Substance: REMDESIVIR
     Indication: COVID-19
     Dosage: ?          OTHER FREQUENCY:ONCE;?
     Route: 040
     Dates: start: 20200824, end: 20200825

REACTIONS (5)
  - Lethargy [None]
  - Blood pressure decreased [None]
  - Dyspnoea [None]
  - Cardio-respiratory arrest [None]
  - Pulseless electrical activity [None]

NARRATIVE: CASE EVENT DATE: 20200825
